FAERS Safety Report 5150931-2 (Version None)
Quarter: 2006Q4

REPORT INFORMATION
  Report Type: 
  Country: None (occurrence: None)
  Receive Date: 20061115
  Receipt Date: 20061109
  Transmission Date: 20070319
  Serious: Yes (Hospitalization)
  Sender: FDA-Public Use
  Company Number: FR-RB-004326-06

PATIENT
  Age: 34 Year
  Sex: Female

DRUGS (1)
  1. SUBUTEX [Suspect]
     Indication: DRUG WITHDRAWAL MAINTENANCE THERAPY
     Dosage: DOSAGE UNKNOWN
     Route: 065

REACTIONS (5)
  - ABSCESS [None]
  - ERYSIPELAS [None]
  - EXCORIATION [None]
  - OEDEMA PERIPHERAL [None]
  - VENOUS THROMBOSIS [None]
